FAERS Safety Report 7538051-0 (Version None)
Quarter: 2011Q2

REPORT INFORMATION
  Report Type: 
  Country: None (occurrence: None)
  Receive Date: 20110609
  Receipt Date: 20110603
  Transmission Date: 20111010
  Serious: Yes (Life-Threatening, Other)
  Sender: FDA-Public Use
  Company Number: JP-PFIZER INC-2011103865

PATIENT
  Age: 64 Year
  Sex: Male
  Weight: 70.5 kg

DRUGS (3)
  1. SUTENT [Suspect]
     Indication: RENAL CELL CARCINOMA
     Dosage: 50 MG, 1X/DAY
     Route: 048
     Dates: start: 20110404, end: 20110413
  2. MAGNESIUM OXIDE [Concomitant]
     Indication: CONSTIPATION
     Dosage: 0.7 G, 3X/DAY
     Dates: start: 20110405, end: 20110510
  3. INDOMETHACIN SODIUM [Concomitant]
     Indication: BACK PAIN
     Dosage: 2X/DAY
     Dates: start: 20110411

REACTIONS (5)
  - PYREXIA [None]
  - PLATELET COUNT DECREASED [None]
  - PLEURAL EFFUSION [None]
  - HEPATIC FUNCTION ABNORMAL [None]
  - RENAL FAILURE ACUTE [None]
